FAERS Safety Report 8022073-X (Version None)
Quarter: 2012Q1

REPORT INFORMATION
  Report Type: 
  Country: None (occurrence: None)
  Receive Date: 20120104
  Receipt Date: 20111228
  Transmission Date: 20120608
  Serious: Yes (Death, Life-Threatening, Hospitalization, Other)
  Sender: FDA-Public Use
  Company Number: JP-CEPHALON-2011001830

PATIENT
  Sex: Male

DRUGS (22)
  1. BENDAMUSTINE HCL [Suspect]
     Route: 042
     Dates: start: 20110112, end: 20110113
  2. MENATETRENONE [Concomitant]
     Dates: start: 20110311, end: 20110322
  3. VALACYCLOVIR HYDROCHLORIDE [Concomitant]
     Dates: start: 20101127, end: 20110322
  4. RITUXIMAB [Concomitant]
     Dates: start: 20101213, end: 20110309
  5. LEVOFLOXACIN [Concomitant]
     Dates: start: 20101127, end: 20110322
  6. CAMOSTAT MESILATE [Concomitant]
     Dates: start: 20101127, end: 20110322
  7. FILGRASTIM [Concomitant]
     Dates: start: 20101226, end: 20110130
  8. ALENDRONATE SODIUM [Concomitant]
     Dates: start: 20101127, end: 20110322
  9. MICAFUNGIN SODIUM [Concomitant]
     Dates: start: 20110222, end: 20110322
  10. ZOLEDRONIC ACID [Concomitant]
     Dates: start: 20110228, end: 20110228
  11. FUROSEMIDE [Concomitant]
     Dates: start: 20110318, end: 20110322
  12. INSULIN HUMAN [Concomitant]
     Dates: start: 20110316, end: 20110322
  13. ITRACONAZOLE [Concomitant]
     Dates: start: 20101127, end: 20110322
  14. AMIKACIN SULFATE [Concomitant]
     Dates: start: 20110222, end: 20110306
  15. FLURBIPROFEN [Concomitant]
     Dates: start: 20110318, end: 20110318
  16. CEFOZOPRAN HYDROCHLORIDE [Concomitant]
     Dates: start: 20110114, end: 20110322
  17. BENDAMUSTINE HCL [Suspect]
     Indication: MANTLE CELL LYMPHOMA
     Route: 042
     Dates: start: 20101214, end: 20101215
  18. BENDAMUSTINE HCL [Suspect]
     Route: 042
     Dates: start: 20110210, end: 20110211
  19. BENDAMUSTINE HCL [Suspect]
     Route: 042
     Dates: start: 20110310, end: 20110311
  20. OMEPRAZOLE [Concomitant]
     Dates: start: 20101127, end: 20110322
  21. MORPHINE HYDROCHLORIDE [Concomitant]
     Dates: start: 20110318, end: 20110322
  22. FAMOTIDINE [Concomitant]
     Dates: start: 20110318, end: 20110322

REACTIONS (18)
  - C-REACTIVE PROTEIN INCREASED [None]
  - MANTLE CELL LYMPHOMA [None]
  - BRONCHITIS [None]
  - WHITE BLOOD CELL COUNT DECREASED [None]
  - PANCYTOPENIA [None]
  - LIVER DISORDER [None]
  - INAPPROPRIATE ANTIDIURETIC HORMONE SECRETION [None]
  - PLATELET COUNT DECREASED [None]
  - BLOOD LACTATE DEHYDROGENASE INCREASED [None]
  - INTERLEUKIN-2 RECEPTOR INCREASED [None]
  - RENAL DISORDER [None]
  - HYPOALBUMINAEMIA [None]
  - PNEUMONIA [None]
  - HYPERCALCAEMIA [None]
  - DISSEMINATED INTRAVASCULAR COAGULATION [None]
  - LYMPHOCYTE COUNT DECREASED [None]
  - BLOOD GLUCOSE INCREASED [None]
  - ANAEMIA [None]
